FAERS Safety Report 6208173-5 (Version None)
Quarter: 2009Q2

REPORT INFORMATION
  Report Type: 
  Country: None (occurrence: None)
  Receive Date: 20090529
  Receipt Date: 20090520
  Transmission Date: 20091009
  Serious: Yes (Other)
  Sender: FDA-Public Use
  Company Number: JP-ROCHE-634862

PATIENT
  Age: 64 Year
  Sex: Male

DRUGS (1)
  1. XELODA [Suspect]
     Indication: COLON CANCER
     Dosage: DRUG REPORTED: XELODA 300
     Route: 048
     Dates: start: 20090318, end: 20090428

REACTIONS (1)
  - STEVENS-JOHNSON SYNDROME [None]
